FAERS Safety Report 10386007 (Version 1)
Quarter: 2014Q1

REPORT INFORMATION
  Report Type: Spontaneous
  Country: US (occurrence: None)
  Receive Date: 20140306
  Receipt Date: 20140306
  Transmission Date: 20141002
  Serious: Yes (Other)
  Sender: FDA-Public Use
  Company Number: 163-21880-13101607

PATIENT
  Age: 68 Year
  Sex: Male
  Weight: 86.2 kg

DRUGS (8)
  1. REVLIMIB (LENALIDOMIDE) (10 MILLIGRAM, CAPSULES) [Suspect]
     Indication: PLASMA CELL MYELOMA
     Route: 048
     Dates: start: 20130412
  2. AXIRON (TESTOSTERONE) (SOLUTION) [Concomitant]
  3. SINGULAIR (MONTELUKAST SODIUM) (TABLETS) [Concomitant]
  4. VALACYCLOVIR (VALACICLOVIR HYDROCHLORIDE) (TABLETS) [Concomitant]
  5. LORATADINE (TABLETS) [Concomitant]
  6. ZOMETA (ZOLEDRONIC ACID) [Concomitant]
  7. AZELASTINE (NASAL DROPS (INCLUDING NASAL SPRAY) [Concomitant]
  8. NASACORT (BUDESONIDE) [Concomitant]

REACTIONS (1)
  - Pulmonary embolism [None]
